FAERS Safety Report 13875181 (Version 1)
Quarter: 2017Q3

REPORT INFORMATION
  Report Type: Spontaneous
  Country: FR (occurrence: FR)
  Receive Date: 20170816
  Receipt Date: 20170816
  Transmission Date: 20171127
  Serious: Yes (Hospitalization)
  Sender: FDA-Public Use
  Company Number: FR-MYLANLABS-2017M1049184

PATIENT

DRUGS (4)
  1. LEPTICUR [Suspect]
     Active Substance: TROPATEPINE HYDROCHLORIDE
     Indication: PARKINSONISM
     Dosage: 1 DF, QD
     Route: 048
  2. LOXAPAC                            /00401801/ [Suspect]
     Active Substance: LOXAPINE SUCCINATE
     Indication: SCHIZOPHRENIA
     Dosage: UNK
     Route: 048
  3. ABILIFY [Suspect]
     Active Substance: ARIPIPRAZOLE
     Indication: SCHIZOPHRENIA
     Dosage: 1 DF, QD
  4. LEPONEX 100 MG [Suspect]
     Active Substance: CLOZAPINE
     Indication: PSYCHOTIC DISORDER
     Dosage: 100 MG, QD
     Route: 048

REACTIONS (5)
  - Constipation [Recovered/Resolved]
  - Megacolon [Recovering/Resolving]
  - Abdominal pain [Recovered/Resolved]
  - Dolichocolon [Recovering/Resolving]
  - Volvulus [Recovered/Resolved]

NARRATIVE: CASE EVENT DATE: 20170316
